FAERS Safety Report 9788308 (Version 1)
Quarter: 2013Q4

REPORT INFORMATION
  Report Type: Spontaneous
  Country: US (occurrence: US)
  Receive Date: 20131230
  Receipt Date: 20131230
  Transmission Date: 20140711
  Serious: No
  Sender: FDA-Public Use
  Company Number: US-PFIZER INC-2013371141

PATIENT
  Age: 51 Year
  Sex: Female

DRUGS (5)
  1. CELEBREX [Suspect]
     Indication: SPINAL COLUMN STENOSIS
     Dosage: 200 MG, 1X/DAY
     Dates: end: 20131203
  2. RAMIPRIL [Concomitant]
     Indication: HYPERTENSION
     Dosage: 10 MG, 1X/DAY
  3. LEVOTHYROXINE SODIUM [Concomitant]
     Indication: HYPERTHYROIDISM
     Dosage: 50 UG, 1X/DAY
  4. IRON [Concomitant]
     Indication: ANAEMIA
     Dosage: UNK
  5. VITAMIN D [Concomitant]
     Indication: VITAMIN D DECREASED
     Dosage: UNK

REACTIONS (1)
  - Pain [Not Recovered/Not Resolved]
